FAERS Safety Report 21713984 (Version 1)
Quarter: 2022Q4

REPORT INFORMATION
  Report Type: Spontaneous
  Country: FR (occurrence: FR)
  Receive Date: 20221212
  Receipt Date: 20221212
  Transmission Date: 20230112
  Serious: Yes (Death, Other)
  Sender: FDA-Public Use
  Company Number: FR-BAXTER-2022BAX026302

PATIENT
  Age: 88 Year
  Sex: Male

DRUGS (3)
  1. CYCLOPHOSPHAMIDE [Suspect]
     Active Substance: CYCLOPHOSPHAMIDE
     Indication: Product used for unknown indication
     Dosage: 600 MG/DOSE 1 DOSE(S)/WEEK 4 WEEK(S)/CYCLE (TREATMENT LINE NUMBER 1, DURATION: 0.5 MONTHS)
     Route: 065
  2. DEXAMETHASONE [Suspect]
     Active Substance: DEXAMETHASONE
     Indication: Product used for unknown indication
     Dosage: 20 MG/DOSE 2 DOSE(S)/WEEK 4 WEEK(S)/CYCLE (TREATMENT LINE NUMBER 1, DURATION: 0.5 MONTHS)
     Route: 065
  3. BORTEZOMIB [Suspect]
     Active Substance: BORTEZOMIB
     Indication: Product used for unknown indication
     Dosage: 2.5 MG/DOSE 1 DOSE(S)/WEEK 4 WEEK(S)/CYCLE (TREATMENT LINE NUMBER 1, DURATION: 0.5 MONTHS)
     Route: 065

REACTIONS (1)
  - Sepsis [Fatal]
